FAERS Safety Report 7090835-1 (Version None)
Quarter: 2010Q4

REPORT INFORMATION
  Report Type: 
  Country: None (occurrence: None)
  Receive Date: 20101109
  Receipt Date: 20101102
  Transmission Date: 20110411
  Serious: Yes (Hospitalization)
  Sender: FDA-Public Use
  Company Number: US-AMGEN-USASP2010003038

PATIENT

DRUGS (15)
  1. EPOGEN [Suspect]
     Dosage: 6000 UNK, UNK
  2. ALBUTEROL [Concomitant]
  3. AMLODIPINE [Concomitant]
  4. ASPIRIN [Concomitant]
  5. PULMICORT [Concomitant]
  6. CLONAZEPAM [Concomitant]
  7. DIGOXIN [Concomitant]
  8. SYMBICORT [Concomitant]
  9. FUROSEMIDE [Concomitant]
  10. METOLAZONE [Concomitant]
  11. NEPRO [Concomitant]
  12. MULTI-VITAMIN [Concomitant]
  13. ACIPHEX [Concomitant]
  14. SIMVASTATIN [Concomitant]
  15. TERAZOSIN HCL [Concomitant]

REACTIONS (3)
  - MEAN CELL VOLUME INCREASED [None]
  - PNEUMONIA [None]
  - RED CELL DISTRIBUTION WIDTH INCREASED [None]
